FAERS Safety Report 5007940-3 (Version None)
Quarter: 2006Q2

REPORT INFORMATION
  Report Type: 
  Country: None (occurrence: None)
  Receive Date: 20060517
  Receipt Date: 20060516
  Transmission Date: 20061013
  Serious: Yes (Hospitalization)
  Sender: FDA-Public Use
  Company Number: 221372

PATIENT
  Age: 33 Year
  Sex: Female
  Weight: 68 kg

DRUGS (3)
  1. AVASTIN [Suspect]
     Indication: COLON CANCER
     Dosage: 7.5 MG/M2, Q3W, INTRAVENOUS
     Route: 042
     Dates: start: 20050412, end: 20060104
  2. CAPECITABINE (CAPECITABINE) [Suspect]
     Indication: COLON CANCER
     Dosage: 1000 MG/M2, Q3W, ORAL
     Route: 048
     Dates: start: 20050412
  3. OXALIPLATIN (OXALIPLATIN) [Suspect]
     Indication: COLON CANCER
     Dosage: 130 MG/M2, INTRAVENOUS
     Route: 042
     Dates: start: 20050412

REACTIONS (3)
  - ILEUS [None]
  - MALLORY-WEISS SYNDROME [None]
  - SMALL INTESTINAL OBSTRUCTION [None]
